FAERS Safety Report 4687431-X (Version None)
Quarter: 2005Q2

REPORT INFORMATION
  Report Type: 
  Country: None (occurrence: None)
  Receive Date: 20050609
  Receipt Date: 20050609
  Transmission Date: 20051028
  Serious: Yes (Disabling)
  Sender: FDA-Public Use
  Company Number: None

PATIENT
  Sex: Female
  Weight: 57.1532 kg

DRUGS (1)
  1. PROZAC [Suspect]
     Indication: DEPRESSION
     Dosage: 1 PILL ONCE A DAY ORAL
     Route: 048
     Dates: start: 20050408, end: 20050523

REACTIONS (7)
  - AMNESIA [None]
  - CONFUSIONAL STATE [None]
  - DIZZINESS [None]
  - DRY MOUTH [None]
  - INFLUENZA LIKE ILLNESS [None]
  - NAUSEA [None]
  - WEIGHT DECREASED [None]
